FAERS Safety Report 5197453-0 (Version None)
Quarter: 2006Q4

REPORT INFORMATION
  Report Type: 
  Country: None (occurrence: None)
  Receive Date: 20060927
  Receipt Date: 20060531
  Transmission Date: 20070319
  Serious: No
  Sender: FDA-Public Use
  Company Number: US-CVT-061193

PATIENT
  Age: 93 Year
  Sex: Male
  Weight: 68.5 kg

DRUGS (10)
  1. RANEXA [Suspect]
     Indication: ANGINA PECTORIS
     Dosage: 500 MG, BID, ORAL
     Route: 048
     Dates: start: 20060526, end: 20060527
  2. RANEXA [Suspect]
     Indication: ANGINA PECTORIS
     Dosage: 500 MG, BID, ORAL
     Route: 048
     Dates: start: 20060529
  3. BACTRIM /00086101/ (SULFAMETHOXAZOLE, TRIMETHOPRIM) [Suspect]
     Indication: URINARY TRACT INFECTION
     Dosage: 1 TABLET, BID, ORAL
     Route: 048
     Dates: start: 20060516, end: 20060522
  4. ZOCOR [Concomitant]
  5. ASPIRIN [Concomitant]
  6. LASIX [Concomitant]
  7. LISINOPRIL /00894001/ (LISINOPRIL) [Concomitant]
  8. METOPROLOL /00376901/ (METOPROLOL) [Concomitant]
  9. PLAVIX [Concomitant]
  10. SYNTHROID [Concomitant]

REACTIONS (2)
  - PENILE SWELLING [None]
  - SCROTAL OEDEMA [None]
